FAERS Safety Report 13346157 (Version 1)
Quarter: 2017Q1

REPORT INFORMATION
  Report Type: Spontaneous
  Country: US (occurrence: US)
  Receive Date: 20170317
  Receipt Date: 20170317
  Transmission Date: 20170428
  Serious: No
  Sender: FDA-Public Use
  Company Number: US-GLAXOSMITHKLINE-US2017032194

PATIENT
  Age: 64 Year
  Sex: Female

DRUGS (1)
  1. NICODERM CQ [Suspect]
     Active Substance: NICOTINE
     Indication: SMOKING CESSATION THERAPY
     Dosage: 21 MG, UNK
     Dates: start: 201702

REACTIONS (9)
  - Application site rash [Not Recovered/Not Resolved]
  - Scratch [Unknown]
  - Dermatitis contact [Not Recovered/Not Resolved]
  - Application site erosion [Unknown]
  - Application site pruritus [Not Recovered/Not Resolved]
  - Feeling abnormal [Unknown]
  - Intercepted medication error [Unknown]
  - Rash generalised [Not Recovered/Not Resolved]
  - Generalised erythema [Not Recovered/Not Resolved]
